FAERS Safety Report 24593241 (Version 2)
Quarter: 2024Q4

REPORT INFORMATION
  Report Type: Report from Study
  Country: BR (occurrence: BR)
  Receive Date: 20241108
  Receipt Date: 20241108
  Transmission Date: 20250115
  Serious: Yes (Life-Threatening, Other)
  Sender: NOVARTIS
  Company Number: BR-002147023-NVSC2024BR213876

PATIENT
  Age: 1 Year
  Sex: Female
  Weight: 8 kg

DRUGS (1)
  1. ZOLGENSMA [Suspect]
     Active Substance: ONASEMNOGENE ABEPARVOVEC-XIOI
     Indication: Spinal muscular atrophy
     Dosage: UNK, ONCE/SINGLE
     Route: 042
     Dates: start: 20241018, end: 20241018

REACTIONS (12)
  - Vomiting [Recovered/Resolved]
  - Malaise [Unknown]
  - Asphyxia [Unknown]
  - Oxygen saturation decreased [Unknown]
  - Pyrexia [Unknown]
  - Fatigue [Unknown]
  - Pallor [Unknown]
  - Oral disorder [Unknown]
  - Nausea [Unknown]
  - Crying [Unknown]
  - Productive cough [Unknown]
  - Poor venous access [Unknown]

NARRATIVE: CASE EVENT DATE: 20241025
